FAERS Safety Report 6960405-1 (Version None)
Quarter: 2010Q3

REPORT INFORMATION
  Report Type: 
  Country: None (occurrence: None)
  Receive Date: 20100901
  Receipt Date: 20100826
  Transmission Date: 20110219
  Serious: No
  Sender: FDA-Public Use
  Company Number: US-TEVA-246641USA

PATIENT
  Sex: Female

DRUGS (1)
  1. COPAXONE [Suspect]
     Indication: MULTIPLE SCLEROSIS
     Route: 058

REACTIONS (6)
  - CHEST PAIN [None]
  - FEELING COLD [None]
  - HYPOAESTHESIA ORAL [None]
  - SWELLING FACE [None]
  - TREMOR [None]
  - VOMITING [None]
